FAERS Safety Report 25548808 (Version 2)
Quarter: 2025Q3

REPORT INFORMATION
  Report Type: Other
  Country: RU (occurrence: RU)
  Receive Date: 20250714
  Receipt Date: 20250731
  Transmission Date: 20251021
  Serious: Yes (Hospitalization, Other)
  Sender: ANI
  Company Number: RU-ANIPHARMA-023524

PATIENT
  Age: 34 Year
  Sex: Female

DRUGS (14)
  1. CYCLOPHOSPHAMIDE [Suspect]
     Active Substance: CYCLOPHOSPHAMIDE
     Indication: Plasmablastic lymphoma
     Route: 037
  2. ETOPOSIDE [Concomitant]
     Active Substance: ETOPOSIDE
     Indication: Plasmablastic lymphoma
     Route: 037
  3. PREDNISONE [Concomitant]
     Active Substance: PREDNISONE
     Indication: Plasmablastic lymphoma
     Route: 037
  4. VINCRISTINE [Concomitant]
     Active Substance: VINCRISTINE
     Indication: Plasmablastic lymphoma
  5. DOXORUBICIN [Concomitant]
     Active Substance: DOXORUBICIN
     Indication: Plasmablastic lymphoma
  6. METHOTREXATE [Concomitant]
     Active Substance: METHOTREXATE
     Indication: Leukaemia
     Route: 037
  7. CYTARABINE [Concomitant]
     Active Substance: CYTARABINE
     Indication: Leukaemia
     Route: 037
  8. DEXAMETHASONE [Concomitant]
     Active Substance: DEXAMETHASONE
     Indication: Leukaemia
     Route: 037
  9. DEXAMETHASONE [Concomitant]
     Active Substance: DEXAMETHASONE
     Indication: Non-Hodgkin^s lymphoma
  10. CYTARABINE [Concomitant]
     Active Substance: CYTARABINE
     Indication: Non-Hodgkin^s lymphoma
  11. VINCRISTINE [Concomitant]
     Active Substance: VINCRISTINE
     Indication: Non-Hodgkin^s lymphoma
  12. CYCLOPHOSPHAMIDE [Suspect]
     Active Substance: CYCLOPHOSPHAMIDE
     Indication: Non-Hodgkin^s lymphoma
  13. DOXORUBICIN [Concomitant]
     Active Substance: DOXORUBICIN
     Indication: Non-Hodgkin^s lymphoma
  14. METHOTREXATE [Concomitant]
     Active Substance: METHOTREXATE
     Indication: Non-Hodgkin^s lymphoma

REACTIONS (3)
  - Febrile neutropenia [Recovering/Resolving]
  - Enterocolitis [Recovering/Resolving]
  - Cytotoxic lesions of corpus callosum [Recovered/Resolved]
